FAERS Safety Report 21652015 (Version 2)
Quarter: 2022Q4

REPORT INFORMATION
  Report Type: Report from Study
  Country: BG (occurrence: BG)
  Receive Date: 20221128
  Receipt Date: 20221130
  Transmission Date: 20230113
  Serious: Yes (Hospitalization)
  Sender: FDA-Public Use
  Company Number: BG-002147023-NVSC2022BG265195

PATIENT
  Age: 64 Year
  Sex: Female
  Weight: 78 kg

DRUGS (14)
  1. ALPELISIB [Suspect]
     Active Substance: ALPELISIB
     Indication: Breast cancer
     Dosage: UNK
     Route: 048
     Dates: start: 20221017
  2. FULVESTRANT [Suspect]
     Active Substance: FULVESTRANT
     Indication: Breast cancer
     Dosage: 500 MG, QMO
     Route: 030
     Dates: start: 20221017
  3. SODIUM CHLORIDE [Concomitant]
     Active Substance: SODIUM CHLORIDE
     Indication: Pyelonephritis acute
     Dosage: UNK
     Route: 065
     Dates: start: 20221107, end: 20221109
  4. INDAPAMIDE\PERINDOPRIL ERBUMINE [Concomitant]
     Active Substance: INDAPAMIDE\PERINDOPRIL ERBUMINE
     Indication: Hypertension
     Dosage: UNK
     Route: 065
     Dates: start: 2003
  5. RINGERS SOLUTION [Concomitant]
     Active Substance: CALCIUM CHLORIDE\POTASSIUM CHLORIDE\SODIUM CHLORIDE
     Indication: Pyelonephritis acute
     Dosage: UNK
     Route: 065
     Dates: start: 20221107, end: 20221107
  6. ARANESP [Concomitant]
     Active Substance: DARBEPOETIN ALFA
     Indication: Anaemia
     Dosage: UNK
     Route: 065
     Dates: start: 20221109, end: 20221109
  7. MAGNESIUM [Concomitant]
     Active Substance: MAGNESIUM
     Indication: Hypomagnesaemia
     Dosage: UNK
     Route: 065
     Dates: start: 20221014
  8. ACTRAPID [Concomitant]
     Active Substance: INSULIN HUMAN
     Indication: Type 2 diabetes mellitus
     Dosage: UNK
     Route: 065
     Dates: start: 20221030
  9. ISOPHANE INSULIN [Concomitant]
     Active Substance: INSULIN NOS
     Indication: Type 2 diabetes mellitus
     Dosage: UNK
     Route: 065
     Dates: start: 20221030
  10. CEFOPERAZONE [Concomitant]
     Active Substance: CEFOPERAZONE
     Indication: Pyelonephritis acute
     Dosage: UNK
     Route: 065
     Dates: start: 20221107, end: 20221109
  11. VITAMIN B COMPLEX [Concomitant]
     Active Substance: CYANOCOBALAMIN\DEXPANTHENOL\NIACINAMIDE\PYRIDOXINE HYDROCHLORIDE\RIBOFLAVIN 5^-PHOSPHATE SODIUM\THIA
     Indication: Pyelonephritis acute
     Dosage: UNK
     Route: 065
     Dates: start: 20221107, end: 20221109
  12. VITAMIN C [Concomitant]
     Active Substance: ASCORBIC ACID
     Indication: Pyelonephritis acute
     Dosage: UNK
     Route: 065
     Dates: start: 20221107, end: 20221109
  13. FAMOTIDINE [Concomitant]
     Active Substance: FAMOTIDINE
     Indication: Pyelonephritis acute
     Dosage: UNK
     Route: 065
     Dates: start: 20221107, end: 20221109
  14. FUROSER [Concomitant]
     Indication: Pyelonephritis acute
     Dosage: UNK
     Route: 065
     Dates: start: 20221107, end: 20221107

REACTIONS (1)
  - Blood uric acid increased [Recovered/Resolved]

NARRATIVE: CASE EVENT DATE: 20221124
